FAERS Safety Report 7281529-8 (Version None)
Quarter: 2011Q1

REPORT INFORMATION
  Report Type: 
  Country: None (occurrence: None)
  Receive Date: 20110208
  Receipt Date: 20110201
  Transmission Date: 20110831
  Serious: Yes (Other)
  Sender: FDA-Public Use
  Company Number: BE-PFIZER INC-2011024661

PATIENT
  Age: 50 Year
  Sex: Female

DRUGS (1)
  1. SOMATROPIN [Suspect]
     Indication: HYPOPITUITARISM
     Dosage: UNK
     Dates: end: 20091012

REACTIONS (1)
  - PITUITARY TUMOUR RECURRENT [None]
